FAERS Safety Report 9783598 (Version 2)
Quarter: 2014Q1

REPORT INFORMATION
  Report Type: Spontaneous
  Country: FR (occurrence: FR)
  Receive Date: 20131226
  Receipt Date: 20140206
  Transmission Date: 20141002
  Serious: Yes (Death, Hospitalization, Other)
  Sender: FDA-Public Use
  Company Number: FR-BAXTER-2013BAX051019

PATIENT
  Age: 77 Year
  Sex: Male
  Weight: 65 kg

DRUGS (3)
  1. DIANEAL PD4 GLUCOSE 1,36%, SOLUTION POUR DIALYSE P?RITON?AL EN POCHE [Suspect]
     Indication: PERITONEAL DIALYSIS
     Dosage: 2 BAGS
     Route: 033
     Dates: start: 20101118, end: 20131218
  2. DIANEAL PD4 GLUCOSE 3,86%, SOLUTION POUR DIALYSE P?RITON?AL EN POCHE [Suspect]
     Indication: PERITONEAL DIALYSIS
     Dosage: 1 BAG
     Route: 033
     Dates: start: 20101118, end: 20131218
  3. PHYSIONEAL 40 GLUCOSE 1,36%, SOLUTION POUR DIALYSE P?RITON?ALE [Suspect]
     Indication: PERITONEAL DIALYSIS
     Dosage: 1 BAG
     Route: 033
     Dates: start: 20101118, end: 20131218

REACTIONS (7)
  - Cardio-respiratory arrest [Fatal]
  - C-reactive protein increased [Unknown]
  - Cardiac failure [Unknown]
  - Peritoneal cloudy effluent [Unknown]
  - Constipation [Unknown]
  - Nausea [Unknown]
  - Abdominal pain [Unknown]
